FAERS Safety Report 5978547-6 (Version None)
Quarter: 2008Q4

REPORT INFORMATION
  Report Type: 
  Country: None (occurrence: None)
  Receive Date: 20081204
  Receipt Date: 20080523
  Transmission Date: 20090506
  Serious: No
  Sender: FDA-Public Use
  Company Number: US-BAYER-200812891BCC

PATIENT
  Age: 44 Year
  Sex: Female

DRUGS (2)
  1. ALEVE [Suspect]
  2. IBUPROFEN TABLETS [Concomitant]

REACTIONS (5)
  - ADVERSE EVENT [None]
  - ARTHRALGIA [None]
  - INFLUENZA LIKE ILLNESS [None]
  - MUSCULOSKELETAL PAIN [None]
  - OEDEMA PERIPHERAL [None]
